FAERS Safety Report 12430143 (Version 6)
Quarter: 2017Q1

REPORT INFORMATION
  Report Type: Report from Study
  Country: US (occurrence: US)
  Receive Date: 20160602
  Receipt Date: 20170316
  Transmission Date: 20170428
  Serious: Yes (Hospitalization)
  Sender: FDA-Public Use
  Company Number: US-BIOGEN-2016BI00244531

PATIENT
  Age: 63 Year
  Sex: Female

DRUGS (1)
  1. TYSABRI [Suspect]
     Active Substance: NATALIZUMAB
     Indication: MULTIPLE SCLEROSIS
     Route: 042
     Dates: start: 20140929

REACTIONS (3)
  - Bladder cancer [Recovered/Resolved]
  - Urinary tract infection [Unknown]
  - Procedural complication [Not Recovered/Not Resolved]

NARRATIVE: CASE EVENT DATE: 201511
